FAERS Safety Report 6132570-X (Version None)
Quarter: 2009Q1

REPORT INFORMATION
  Report Type: 
  Country: None (occurrence: None)
  Receive Date: 20090325
  Receipt Date: 20090312
  Transmission Date: 20090719
  Serious: Yes (Other)
  Sender: FDA-Public Use
  Company Number: IT-GENENTECH-279639

PATIENT
  Age: 87 Year
  Sex: Female

DRUGS (7)
  1. ACTIVASE [Suspect]
     Indication: PULMONARY EMBOLISM
     Dosage: 100 MG, UNK
     Route: 042
  2. ACTIVASE [Suspect]
     Indication: CARDIO-RESPIRATORY ARREST
  3. ENOXAPARIN [Suspect]
     Indication: PULMONARY EMBOLISM
     Dosage: 80 MG, BID
  4. ENOXAPARIN [Suspect]
     Indication: CARDIO-RESPIRATORY ARREST
  5. UNFRACTIONATED HEPARIN [Suspect]
     Indication: PULMONARY EMBOLISM
     Dosage: 20000 IU, QD
  6. UNFRACTIONATED HEPARIN [Suspect]
     Indication: CARDIO-RESPIRATORY ARREST
  7. DOPAMINE HCL [Suspect]
     Indication: DRUG USE FOR UNKNOWN INDICATION
     Dosage: 18 A?GKGMN, UNK

REACTIONS (1)
  - RENAL FAILURE ACUTE [None]
